FAERS Safety Report 19272495 (Version 2)
Quarter: 2021Q2

REPORT INFORMATION
  Report Type: Spontaneous
  Country: IT (occurrence: IT)
  Receive Date: 20210519
  Receipt Date: 20210526
  Transmission Date: 20210717
  Serious: Yes (Other)
  Sender: FDA-Public Use
  Company Number: IT-AUROBINDO-AUR-APL-2021-020013

PATIENT
  Age: 87 Year
  Sex: Female

DRUGS (9)
  1. LISINOPRIL TABLET [Suspect]
     Active Substance: LISINOPRIL
     Indication: HYPERTENSION
     Dosage: 2.5 MILLIGRAM, ONCE A DAY
     Route: 048
  2. TARGIN [Concomitant]
     Active Substance: NALOXONE HYDROCHLORIDE\OXYCODONE HYDROCHLORIDE
     Indication: OSTEOARTHRITIS
     Dosage: 7.5 MILLIGRAM, ONCE A DAY
     Route: 048
  3. FUROSEMIDE TABLETS [Suspect]
     Active Substance: FUROSEMIDE
     Indication: HYPERTENSION
     Dosage: 25 MILLIGRAM, ONCE A DAY
     Route: 048
  4. QUETIAPINE FUMARATE. [Concomitant]
     Active Substance: QUETIAPINE FUMARATE
     Indication: PRODUCT USED FOR UNKNOWN INDICATION
     Dosage: 50 MILLIGRAM, ONCE A DAY
     Route: 048
  5. SIMVASTATIN. [Concomitant]
     Active Substance: SIMVASTATIN
     Indication: PRODUCT USED FOR UNKNOWN INDICATION
     Dosage: UNK
     Route: 048
  6. FOLIC ACID. [Concomitant]
     Active Substance: FOLIC ACID
     Indication: PRODUCT USED FOR UNKNOWN INDICATION
     Dosage: UNK
     Route: 048
  7. ELIQUIS [Concomitant]
     Active Substance: APIXABAN
     Indication: ATRIAL FIBRILLATION
     Dosage: 5 MILLIGRAM, ONCE A DAY
     Route: 048
     Dates: start: 20171001
  8. OMEPRAZOLE. [Concomitant]
     Active Substance: OMEPRAZOLE
     Indication: PRODUCT USED FOR UNKNOWN INDICATION
     Dosage: UNK
     Route: 048
  9. ALDACTONE [Suspect]
     Active Substance: SPIRONOLACTONE
     Indication: HYPERTENSION
     Dosage: 100 MILLIGRAM, EVERY OTHER DAY
     Route: 048

REACTIONS (3)
  - Hypotension [Recovered/Resolved]
  - Asthenia [Recovered/Resolved]
  - Loss of consciousness [Recovered/Resolved]

NARRATIVE: CASE EVENT DATE: 20210426
